FAERS Safety Report 6920795-2 (Version None)
Quarter: 2010Q3

REPORT INFORMATION
  Report Type: 
  Country: None (occurrence: None)
  Receive Date: 20100812
  Receipt Date: 20100720
  Transmission Date: 20110219
  Serious: Yes (Disabling)
  Sender: FDA-Public Use
  Company Number: CA-BAYER-201025341NA

PATIENT
  Age: 44 Year
  Sex: Female
  Weight: 62 kg

DRUGS (2)
  1. AVELOX [Suspect]
     Indication: SINUSITIS
     Dosage: TOTAL DAILY DOSE: 400 MG  UNIT DOSE: 400 MG
     Route: 048
     Dates: start: 20091117
  2. ANTIDEPRESSIVE [Concomitant]

REACTIONS (4)
  - BURNING SENSATION [None]
  - DECREASED APPETITE [None]
  - GLOSSODYNIA [None]
  - WEIGHT DECREASED [None]
